FAERS Safety Report 24855907 (Version 1)
Quarter: 2025Q1

REPORT INFORMATION
  Report Type: Spontaneous
  Country: US (occurrence: None)
  Receive Date: 20250117
  Receipt Date: 20250117
  Transmission Date: 20250409
  Serious: Yes (Hospitalization)
  Sender: FDA-CTU
  Company Number: None

PATIENT
  Sex: Male
  Weight: 88 kg

DRUGS (3)
  1. BLEOMYCIN [Suspect]
     Active Substance: BLEOMYCIN SULFATE
     Dates: end: 20241231
  2. CISPLATIN [Suspect]
     Active Substance: CISPLATIN
     Dates: end: 20241228
  3. ETOPOSIDE [Suspect]
     Active Substance: ETOPOSIDE
     Dates: end: 20241228

REACTIONS (3)
  - Febrile neutropenia [None]
  - Tachycardia [None]
  - Pneumonia [None]

NARRATIVE: CASE EVENT DATE: 20250101
